FAERS Safety Report 5793247-3 (Version None)
Quarter: 2008Q2

REPORT INFORMATION
  Report Type: 
  Country: None (occurrence: None)
  Receive Date: 20080627
  Receipt Date: 20080625
  Transmission Date: 20081010
  Serious: Yes (Life-Threatening, Hospitalization)
  Sender: FDA-Public Use
  Company Number: AT-ASTRAZENECA-2008PK00717

PATIENT
  Sex: Female

DRUGS (8)
  1. DIPRIVAN [Suspect]
     Indication: SEDATION
     Dosage: 4 MG TO 6 MG/KG/H
     Route: 042
     Dates: start: 20040207, end: 20040207
  2. DIPRIVAN [Suspect]
     Dosage: 6 MG TO 7 MG/KG/H
     Route: 042
     Dates: start: 20040208, end: 20040208
  3. DIPRIVAN [Suspect]
     Dosage: 4 MG TO 5 MG/KG/H
     Route: 042
     Dates: start: 20040209, end: 20040211
  4. DIPRIVAN [Suspect]
     Dosage: 4 MG /KG/H
     Route: 042
     Dates: start: 20040212, end: 20040213
  5. BRIETAL [Concomitant]
     Dates: start: 20040207, end: 20040207
  6. ULTIVA [Concomitant]
     Dates: start: 20040208, end: 20040208
  7. SUFENTA [Concomitant]
     Dates: start: 20040208, end: 20040208
  8. CORTISONE [Concomitant]
     Dates: start: 20040209, end: 20040213

REACTIONS (6)
  - HIP ARTHROPLASTY [None]
  - KNEE ARTHROPLASTY [None]
  - NECROSIS [None]
  - OVERDOSE [None]
  - PROPOFOL INFUSION SYNDROME [None]
  - RHABDOMYOLYSIS [None]
